FAERS Safety Report 10830262 (Version 1)
Quarter: 2015Q1

REPORT INFORMATION
  Report Type: Spontaneous
  Country: FR (occurrence: FR)
  Receive Date: 20150219
  Receipt Date: 20150219
  Transmission Date: 20150721
  Serious: Yes (Other)
  Sender: FDA-Public Use
  Company Number: FR-CIPLA LTD.-2015FR01326

PATIENT

DRUGS (5)
  1. GEMCITABINE [Suspect]
     Active Substance: GEMCITABINE\GEMCITABINE HYDROCHLORIDE
     Indication: GERM CELL CANCER METASTATIC
     Dosage: 1000 MG/M2 DAY 1 AND DAY 5 EVERY 3 WEEKS FOR FOUR CYCLES
  2. MESNA. [Concomitant]
     Active Substance: MESNA
     Dosage: 500 MG/M2 H0, H3, H7, H11 ON EACH DAY OF IFOSFAMIDE
     Route: 042
  3. IFOSFAMIDE. [Suspect]
     Active Substance: IFOSFAMIDE
     Indication: GERM CELL CANCER METASTATIC
     Dosage: 1200 MG/M2/DAY ON DAY 1-5 EVERY 3 WEEKS FOR FOUR CYCLES
  4. CISPLATIN. [Suspect]
     Active Substance: CISPLATIN
     Indication: GERM CELL CANCER METASTATIC
     Dosage: 20 MG/M2/DAY DAY 1-5 EVERY 3 WEEKS FOR FOUR CYCLES
  5. GRANULOCYTE COLONY-STIMULATING FACTOR [Suspect]
     Active Substance: GRANULOCYTE COLONY-STIMULATING FACTOR NOS
     Indication: GERM CELL CANCER METASTATIC
     Dosage: 263 MICROGRAM/DAY DAY 7 TO 15,EVERY 3 WEEKS FOR FOUR CYCLES

REACTIONS (1)
  - Liver disorder [Unknown]
